FAERS Safety Report 4727356-4 (Version None)
Quarter: 2005Q3

REPORT INFORMATION
  Report Type: 
  Country: None (occurrence: None)
  Receive Date: 20050728
  Receipt Date: 20050713
  Transmission Date: 20060218
  Serious: Yes (Hospitalization, Other)
  Sender: FDA-Public Use
  Company Number: PHHO2005JP11153

PATIENT
  Age: 34 Year
  Sex: Male

DRUGS (2)
  1. TOFRANIL [Suspect]
     Indication: DEPRESSION
     Dosage: UNK, UNK
     Route: 048
     Dates: start: 20031105, end: 20031121
  2. TETRAMIDE [Concomitant]
     Indication: DEPRESSION

REACTIONS (11)
  - ANXIETY [None]
  - BIPOLAR DISORDER [None]
  - BLOOD LACTATE DEHYDROGENASE INCREASED [None]
  - DYSURIA [None]
  - HEADACHE [None]
  - INSOMNIA [None]
  - LOGORRHOEA [None]
  - MANIA [None]
  - PSYCHOMOTOR HYPERACTIVITY [None]
  - RESTLESSNESS [None]
  - THIRST [None]
